FAERS Safety Report 8086314-5 (Version None)
Quarter: 2012Q1

REPORT INFORMATION
  Report Type: 
  Country: None (occurrence: None)
  Receive Date: 20120128
  Receipt Date: 20110427
  Transmission Date: 20120608
  Serious: Yes (Other)
  Sender: FDA-Public Use
  Company Number: US-ABBOTT-11P-163-0722576-00

PATIENT
  Sex: Female
  Weight: 68.1 kg

DRUGS (10)
  1. ACIDOPHILUS [Concomitant]
     Indication: GASTROINTESTINAL DISORDER
  2. TETRACYCLINE [Concomitant]
     Indication: ACNE
  3. PRILOSEC [Concomitant]
     Indication: GASTROENTERITIS
  4. IRON [Concomitant]
     Indication: MINERAL SUPPLEMENTATION
  5. NASACORT [Concomitant]
     Indication: SEASONAL ALLERGY
  6. DICYCLOMINE [Concomitant]
     Indication: GASTROENTERITIS
  7. HUMIRA [Suspect]
     Indication: RHEUMATOID ARTHRITIS
     Dates: start: 20101116
  8. METHOTREXATE [Concomitant]
     Indication: RHEUMATOID ARTHRITIS
  9. AMITRIPTYLINE HCL [Concomitant]
     Indication: FIBROMYALGIA
     Dates: start: 19910101
  10. FOLIC ACID [Concomitant]
     Indication: VITAMIN SUPPLEMENTATION

REACTIONS (4)
  - INJECTION SITE URTICARIA [None]
  - HEADACHE [None]
  - INJECTION SITE HAEMATOMA [None]
  - BASAL CELL CARCINOMA [None]
